FAERS Safety Report 5782173-1 (Version None)
Quarter: 2008Q2

REPORT INFORMATION
  Report Type: 
  Country: None (occurrence: None)
  Receive Date: 20080623
  Receipt Date: 20080611
  Transmission Date: 20081010
  Serious: Yes (Death, Life-Threatening, Hospitalization)
  Sender: FDA-Public Use
  Company Number: JP-SANOFI-SYNTHELABO-A01200804411

PATIENT
  Sex: Male
  Weight: 65 kg

DRUGS (6)
  1. KETAS [Concomitant]
     Indication: DRUG USE FOR UNKNOWN INDICATION
     Route: 048
  2. EBRANTIL [Concomitant]
     Indication: DRUG USE FOR UNKNOWN INDICATION
     Route: 048
  3. URIEF [Concomitant]
     Indication: HYPERTENSION
     Route: 048
  4. DIOVAN [Suspect]
     Indication: HYPERTENSION
     Route: 048
  5. PLAVIX [Suspect]
     Indication: CEREBRAL INFARCTION
     Route: 048
  6. MERISLON [Concomitant]
     Indication: DRUG USE FOR UNKNOWN INDICATION
     Route: 048

REACTIONS (1)
  - INTERSTITIAL LUNG DISEASE [None]
